FAERS Safety Report 6101673-8 (Version None)
Quarter: 2009Q1

REPORT INFORMATION
  Report Type: 
  Country: None (occurrence: None)
  Receive Date: 20090304
  Receipt Date: 20090224
  Transmission Date: 20090719
  Serious: Yes (Hospitalization)
  Sender: FDA-Public Use
  Company Number: DE-BRISTOL-MYERS SQUIBB COMPANY-14482392

PATIENT
  Age: 62 Year
  Sex: Male
  Weight: 93 kg

DRUGS (3)
  1. CETUXIMAB [Suspect]
     Indication: GASTROOESOPHAGEAL CANCER
     Dosage: STRENGTH- 5MG/ML;MOST RECENT DOSE ON 12JAN09
     Route: 042
     Dates: start: 20081204
  2. CISPLATIN [Suspect]
     Indication: GASTROOESOPHAGEAL CANCER
     Dosage: FREQ-ON DAY 1 OF CYCLE, MOST RECENT DOSE ON 29DEC08
     Route: 042
     Dates: start: 20081204
  3. CAPECITABINE [Suspect]
     Indication: GASTROOESOPHAGEAL CANCER
     Dosage: MOST RECENT DOSE ON 12JAN09, FREQ-ON DAY 1-15
     Route: 048
     Dates: start: 20081204

REACTIONS (1)
  - THROMBOSIS [None]
